FAERS Safety Report 4504919-2 (Version None)
Quarter: 2004Q4

REPORT INFORMATION
  Report Type: 
  Country: None (occurrence: None)
  Receive Date: 20040928
  Receipt Date: 20040803
  Transmission Date: 20050328
  Serious: No
  Sender: FDA-Public Use
  Company Number: 04P-163-0269112-00

PATIENT
  Age: 67 Year
  Sex: Female
  Weight: 68.0396 kg

DRUGS (13)
  1. HUMIRA [Suspect]
     Indication: RHEUMATOID ARTHRITIS
     Dosage: 40 MG, 1 IN 2 WK, SUBCUTANEOUS
     Route: 058
     Dates: start: 20040501, end: 20040701
  2. FUROSEMIDE [Concomitant]
  3. HUMALOG [Concomitant]
  4. LANTUS [Concomitant]
  5. DIOVAN [Concomitant]
  6. VERAPAMIL [Concomitant]
  7. LEVOTHYROXINE SODIUM [Concomitant]
  8. AZATHIOPRINE [Concomitant]
  9. CELECOXIB [Concomitant]
  10. CYCLOBENZAPRINE HYDROCHLORIDE [Concomitant]
  11. LORAZEPAM [Concomitant]
  12. ULTRACET [Concomitant]
  13. OXYCOCET [Concomitant]

REACTIONS (3)
  - COUGH [None]
  - NASOPHARYNGITIS [None]
  - OEDEMA PERIPHERAL [None]
